FAERS Safety Report 7058034-7 (Version None)
Quarter: 2010Q4

REPORT INFORMATION
  Report Type: 
  Country: None (occurrence: None)
  Receive Date: 20101022
  Receipt Date: 20101018
  Transmission Date: 20110411
  Serious: Yes (Death)
  Sender: FDA-Public Use
  Company Number: JP-JNJFOC-20101000784

PATIENT
  Sex: Male
  Weight: 58 kg

DRUGS (33)
  1. DUROTEP MT [Suspect]
     Indication: PAIN
     Route: 062
  2. DUROTEP MT [Suspect]
     Route: 062
  3. DUROTEP MT [Suspect]
     Route: 062
  4. DUROTEP MT [Suspect]
     Route: 062
  5. DUROTEP MT [Suspect]
     Route: 062
  6. DUROTEP MT [Suspect]
     Dosage: 4 PATCHES.
     Route: 062
  7. DUROTEP MT [Suspect]
     Route: 062
  8. DUROTEP MT [Suspect]
     Route: 062
  9. DUROTEP MT [Suspect]
     Route: 062
  10. DUROTEP MT [Suspect]
     Route: 062
  11. PREGABALIN [Suspect]
     Indication: PAIN
     Route: 048
  12. PREGABALIN [Suspect]
     Route: 048
  13. PREGABALIN [Suspect]
     Route: 048
  14. PREGABALIN [Suspect]
     Route: 048
  15. PREGABALIN [Suspect]
     Route: 048
  16. ALPRAZOLAM [Suspect]
     Indication: PAIN
     Route: 048
  17. LANDSEN [Suspect]
     Indication: PAIN
     Route: 048
  18. AMITRIPTYLINE HCL [Suspect]
     Indication: PAIN
     Route: 048
  19. ETHYLMORPHINE HYDROCHLORIDE [Suspect]
     Indication: PAIN
     Dosage: 30-50 MG
     Route: 048
  20. MORPHINE HYDROCHLORIDE [Concomitant]
     Indication: PAIN
     Dosage: 20-40 MG/DAY, 5-20 MG/ONCE, 11 PACKAGES (ON AN AS-NEEDED BASIS).
     Route: 048
  21. GABAPEN [Concomitant]
     Indication: PAIN
     Dosage: 300-600 MG
     Route: 048
  22. GABAPEN [Concomitant]
     Route: 048
  23. DESYREL [Concomitant]
     Indication: PRODUCT USED FOR UNKNOWN INDICATION
     Route: 048
  24. CYMBALTA [Concomitant]
     Indication: PRODUCT USED FOR UNKNOWN INDICATION
     Route: 048
  25. MAGMITT [Concomitant]
     Indication: CONSTIPATION
     Route: 048
  26. HALCION [Concomitant]
     Indication: PRODUCT USED FOR UNKNOWN INDICATION
     Route: 048
  27. HALCION [Concomitant]
     Route: 048
  28. ROHYPNOL [Concomitant]
     Route: 048
  29. DEPAS [Concomitant]
     Route: 048
  30. NEUROTROPIN [Concomitant]
     Indication: PAIN
     Route: 048
  31. PURSENNID [Concomitant]
     Indication: CONSTIPATION
     Route: 048
  32. GASCON [Concomitant]
     Indication: ILEUS PARALYTIC
     Route: 048
  33. VOLTAREN [Concomitant]
     Indication: PAIN
     Route: 054

REACTIONS (10)
  - ANXIETY [None]
  - CARDIAC FAILURE ACUTE [None]
  - CARDIO-RESPIRATORY ARREST [None]
  - DEPRESSIVE SYMPTOM [None]
  - FATIGUE [None]
  - FIBROMYALGIA [None]
  - INSOMNIA [None]
  - OBSESSIVE THOUGHTS [None]
  - PAIN [None]
  - SUICIDE ATTEMPT [None]
